FAERS Safety Report 12544558 (Version 5)
Quarter: 2016Q4

REPORT INFORMATION
  Report Type: Report from Study
  Country: FR (occurrence: FR)
  Receive Date: 20160711
  Receipt Date: 20161207
  Transmission Date: 20170207
  Serious: No
  Sender: FDA-Public Use
  Company Number: FR-ROCHE-1737067

PATIENT
  Sex: Male

DRUGS (11)
  1. RANIBIZUMAB [Suspect]
     Active Substance: RANIBIZUMAB
     Dosage: LEFT EYE
     Route: 031
     Dates: start: 20160421
  2. RANIBIZUMAB [Suspect]
     Active Substance: RANIBIZUMAB
     Dosage: LEFT EYE
     Route: 031
     Dates: start: 20150708, end: 20150708
  3. RANIBIZUMAB [Suspect]
     Active Substance: RANIBIZUMAB
     Dosage: LEFT EYE
     Route: 031
     Dates: start: 20150903
  4. RANIBIZUMAB [Suspect]
     Active Substance: RANIBIZUMAB
     Dosage: LEFT EYE
     Route: 031
     Dates: start: 20151126, end: 20151126
  5. RANIBIZUMAB [Suspect]
     Active Substance: RANIBIZUMAB
     Dosage: LEFT EYE
     Route: 031
     Dates: start: 20151223
  6. RANIBIZUMAB [Suspect]
     Active Substance: RANIBIZUMAB
     Dosage: LEFT EYE
     Route: 031
     Dates: start: 20160229
  7. RANIBIZUMAB [Suspect]
     Active Substance: RANIBIZUMAB
     Indication: AGE-RELATED MACULAR DEGENERATION
     Dosage: LEFT EYE
     Route: 031
     Dates: start: 20150513, end: 20150513
  8. RANIBIZUMAB [Suspect]
     Active Substance: RANIBIZUMAB
     Dosage: LEFT EYE
     Route: 031
     Dates: start: 20151028, end: 20151028
  9. RANIBIZUMAB [Suspect]
     Active Substance: RANIBIZUMAB
     Dosage: LEFT EYE
     Route: 031
     Dates: start: 20160121
  10. RANIBIZUMAB [Suspect]
     Active Substance: RANIBIZUMAB
     Dosage: LEFT EYE
     Route: 031
     Dates: start: 20150608
  11. RANIBIZUMAB [Suspect]
     Active Substance: RANIBIZUMAB
     Dosage: LEFT EYE
     Route: 031
     Dates: start: 20150803

REACTIONS (1)
  - Inappropriate schedule of drug administration [Unknown]
